FAERS Safety Report 7236913-5 (Version None)
Quarter: 2011Q1

REPORT INFORMATION
  Report Type: 
  Country: None (occurrence: None)
  Receive Date: 20110120
  Receipt Date: 20110114
  Transmission Date: 20110831
  Serious: Yes (Hospitalization)
  Sender: FDA-Public Use
  Company Number: JP-AMGEN-JPNSP2010002276

PATIENT

DRUGS (22)
  1. METHOTREXATE [Concomitant]
     Indication: RHEUMATOID ARTHRITIS
     Dosage: UNK UNK, UNK
     Route: 048
     Dates: start: 20050601
  2. ENBREL [Suspect]
     Indication: RHEUMATOID ARTHRITIS
     Dosage: 25 MG, 2X/WEEK
     Route: 058
     Dates: start: 20070205, end: 20090331
  3. RABEPRAZOLE SODIUM [Concomitant]
     Dosage: 20 MG 1X/DAY
     Route: 048
     Dates: start: 20090525
  4. PREDNISOLONE [Concomitant]
     Dosage: 3MG DAILY (2 MG AND 1 MG DAILY)
     Route: 048
     Dates: start: 20090525, end: 20090526
  5. RHEUMATREX [Concomitant]
     Dosage: 2 MG, WEEKLY
     Route: 048
  6. PREDNISOLONE [Concomitant]
     Indication: RHEUMATOID ARTHRITIS
     Dosage: 20 MG
     Route: 048
     Dates: start: 20060101
  7. METHOTREXATE [Concomitant]
     Dosage: 8 MG, UNK
  8. MICARDIS [Concomitant]
     Dosage: 40 MG, 1X/DAY
     Route: 048
     Dates: start: 20090525
  9. FOLIAMIN [Concomitant]
     Dosage: 5 MG, WEEKLY
     Route: 048
     Dates: start: 20090525
  10. RHEUMATREX [Concomitant]
     Dosage: UNK
     Dates: start: 20050601
  11. LOXONIN                            /00890702/ [Concomitant]
     Dosage: 60 MG, 3X/DAY
     Route: 048
     Dates: start: 20090525
  12. PARIET [Concomitant]
     Dosage: 20 MG, 1X/DAY
     Route: 048
     Dates: start: 20090525
  13. LOXONIN [Concomitant]
     Dosage: 60 MG, 3X/DAY
     Route: 048
  14. ENBREL [Suspect]
  15. PREDNISOLONE [Concomitant]
     Dosage: 20 MG, UNK
     Dates: start: 20060101
  16. METHOTREXATE [Concomitant]
     Dosage: 5 MG, WEEKLY
     Route: 048
  17. CIBENOL [Concomitant]
     Dosage: 100 MG, 3X/DAY
     Route: 048
     Dates: start: 20090525
  18. ALENDRONATE SODIUM [Concomitant]
     Indication: PROPHYLAXIS
     Dosage: 35 MG, WEEKLY
     Route: 048
     Dates: start: 20090525
  19. NITOROL [Concomitant]
     Dosage: 20 MG, 2X/DAY
     Route: 048
     Dates: start: 20090525
  20. RHEUMATREX [Concomitant]
     Dosage: 3 MG, 2X/WEEK
     Route: 048
  21. METHOTREXATE [Concomitant]
     Dosage: 6 MG, WEEKLY
     Dates: start: 20060101
  22. MUCOSTA [Concomitant]
     Dosage: 100 MG, 3X/DAY
     Route: 048
     Dates: start: 20090525

REACTIONS (1)
  - PLEURISY [None]
